FAERS Safety Report 9682891 (Version 3)
Quarter: 2013Q4

REPORT INFORMATION
  Report Type: Spontaneous
  Country: US (occurrence: US)
  Receive Date: 20131112
  Receipt Date: 20131212
  Transmission Date: 20140711
  Serious: No
  Sender: FDA-Public Use
  Company Number: US-009507513-1310USA012404

PATIENT
  Sex: Female
  Weight: 61.22 kg

DRUGS (1)
  1. CELESTONE SOLUSPAN [Suspect]
     Dosage: TWO STEROID INJECTIONS

REACTIONS (1)
  - Feeling abnormal [Unknown]
